FAERS Safety Report 22361744 (Version 7)
Quarter: 2023Q4

REPORT INFORMATION
  Report Type: Report from Study
  Country: US (occurrence: None)
  Receive Date: 20230524
  Receipt Date: 20231110
  Transmission Date: 20240110
  Serious: Yes (Other)
  Sender: FDA-Public Use
  Company Number: US-ROCHE-3352372

PATIENT
  Age: 75 Year
  Sex: Female
  Weight: 80.5 kg

DRUGS (30)
  1. RANIBIZUMAB [Suspect]
     Active Substance: RANIBIZUMAB
     Indication: Neovascular age-related macular degeneration
     Dosage: DOSE OF STUDY DRUG FIRST ADMINISTERED : 100 MG/ML AND START DATE OF MOST RECENT DOSE OF STUDY DRUG P
     Route: 050
     Dates: start: 20210127
  2. RANIBIZUMAB [Suspect]
     Active Substance: RANIBIZUMAB
  3. RANIBIZUMAB [Suspect]
     Active Substance: RANIBIZUMAB
  4. RANIBIZUMAB [Suspect]
     Active Substance: RANIBIZUMAB
  5. RANIBIZUMAB [Suspect]
     Active Substance: RANIBIZUMAB
  6. MYRBETRIQ [Concomitant]
     Active Substance: MIRABEGRON
     Indication: Hypertonic bladder
  7. ATENOLOL [Concomitant]
     Active Substance: ATENOLOL
     Indication: Headache
  8. BIOTIN [Concomitant]
     Active Substance: BIOTIN
  9. CALCIUM [Concomitant]
     Active Substance: CALCIUM
     Indication: Osteoporosis postmenopausal
  10. FOLIC ACID [Concomitant]
     Active Substance: FOLIC ACID
  11. MAGNESIUM [Concomitant]
     Active Substance: MAGNESIUM
  12. POTASSIUM [Concomitant]
     Active Substance: POTASSIUM
  13. VITAMIN B12 [Concomitant]
     Active Substance: CYANOCOBALAMIN
  14. ASPIRIN [Concomitant]
     Active Substance: ASPIRIN
     Dates: start: 20190403
  15. MOMETASONE [Concomitant]
     Active Substance: MOMETASONE
     Indication: Lip blister
     Dates: start: 20200107
  16. MUPIROCIN [Concomitant]
     Active Substance: MUPIROCIN
     Indication: Lip blister
     Dates: start: 20190812
  17. CLINDAMYCIN [Concomitant]
     Active Substance: CLINDAMYCIN
     Indication: Tooth abscess
     Dates: start: 20211026
  18. HYDROCODONE [Concomitant]
     Active Substance: HYDROCODONE
     Indication: Arthralgia
     Dates: start: 20211026
  19. HYDROCODONE [Concomitant]
     Active Substance: HYDROCODONE
     Indication: Tooth abscess
     Dates: start: 20230620, end: 20230621
  20. CRESTOR [Concomitant]
     Active Substance: ROSUVASTATIN CALCIUM
     Indication: Hypercholesterolaemia
     Dates: start: 20211013
  21. MELOXICAM [Concomitant]
     Active Substance: MELOXICAM
     Indication: Arthralgia
     Dates: start: 20220203
  22. CETIRIZINE HYDROCHLORIDE [Concomitant]
     Active Substance: CETIRIZINE HYDROCHLORIDE
     Indication: Rhinitis allergic
     Dates: start: 20230224
  23. ROOSTER COMB INJECTION [Concomitant]
     Indication: Arthralgia
     Dates: start: 20230511, end: 20230511
  24. ROOSTER COMB INJECTION [Concomitant]
     Dates: start: 20230808, end: 20230808
  25. RANIBIZUMAB [Concomitant]
     Active Substance: RANIBIZUMAB
     Dosage: DATE OF FIRST DOSE OF STUDY DRUG 24-FEB-2021?DOSE OF STUDY DRUG FIRST ADMINISTERED 10 MG/ML?DOSE LAS
     Route: 050
     Dates: start: 20210224
  26. PREDNISONE [Concomitant]
     Active Substance: PREDNISONE
     Indication: COVID-19
     Dates: start: 20230802, end: 20230807
  27. AZITHROMYCIN [Concomitant]
     Active Substance: AZITHROMYCIN
     Indication: COVID-19
     Dates: start: 20230802, end: 20230808
  28. BENZONATATE [Concomitant]
     Active Substance: BENZONATATE
     Indication: COVID-19
     Dates: start: 20230802, end: 20230803
  29. TYLENOL [Concomitant]
     Active Substance: ACETAMINOPHEN
     Indication: Squamous cell carcinoma
     Route: 065
     Dates: start: 20231025, end: 20231026
  30. TRAMADOL [Concomitant]
     Active Substance: TRAMADOL\TRAMADOL HYDROCHLORIDE
     Indication: Squamous cell carcinoma
     Route: 065
     Dates: start: 20231025, end: 20231025

REACTIONS (2)
  - Device issue [Unknown]
  - No adverse event [Unknown]

NARRATIVE: CASE EVENT DATE: 20230517
